FAERS Safety Report 23584748 (Version 1)
Quarter: 2024Q1

REPORT INFORMATION
  Report Type: Spontaneous
  Country: US (occurrence: None)
  Receive Date: 20240301
  Receipt Date: 20240301
  Transmission Date: 20240409
  Serious: Yes (Death)
  Sender: FDA-Public Use
  Company Number: US-ROCHE-3500445

PATIENT
  Age: 61 Year
  Sex: Female
  Weight: 52.3 kg

DRUGS (5)
  1. TECENTRIQ [Suspect]
     Active Substance: ATEZOLIZUMAB
     Indication: Small cell lung cancer
     Dosage: ADMINISTERED THROUGH PORT-A-CATH
     Route: 041
     Dates: start: 20230725, end: 20231010
  2. CARBOPLATIN [Concomitant]
     Active Substance: CARBOPLATIN
     Indication: Small cell lung cancer
     Route: 042
     Dates: start: 20230725, end: 20230810
  3. ETOPOSIDE [Concomitant]
     Active Substance: ETOPOSIDE
     Indication: Small cell lung cancer
     Dosage: DAYS 1, 2, AND 3 EVERY 21 DAYS
     Route: 042
     Dates: start: 20230725, end: 20231010
  4. DEXAMETHASONE [Concomitant]
     Active Substance: DEXAMETHASONE
     Indication: Small cell lung cancer
     Route: 042
     Dates: start: 20230725, end: 20231010
  5. ALOXI [Concomitant]
     Active Substance: PALONOSETRON HYDROCHLORIDE
     Indication: Small cell lung cancer
     Route: 042
     Dates: start: 20230725, end: 20231010

REACTIONS (1)
  - Small cell lung cancer metastatic [Fatal]

NARRATIVE: CASE EVENT DATE: 20231104
